FAERS Safety Report 23639595 (Version 1)
Quarter: 2024Q1

REPORT INFORMATION
  Report Type: Spontaneous
  Country: US (occurrence: US)
  Receive Date: 20240316
  Receipt Date: 20240316
  Transmission Date: 20240409
  Serious: No
  Sender: FDA-Public Use
  Company Number: US-JNJFOC-20240339859

PATIENT
  Sex: Female

DRUGS (1)
  1. STELARA [Suspect]
     Active Substance: USTEKINUMAB
     Indication: Product used for unknown indication
     Dosage: 4 UNITS
     Route: 040

REACTIONS (2)
  - Dose calculation error [Unknown]
  - Product preparation error [Unknown]

NARRATIVE: CASE EVENT DATE: 20240305
